FAERS Safety Report 4837561-4 (Version None)
Quarter: 2005Q4

REPORT INFORMATION
  Report Type: 
  Country: None (occurrence: None)
  Receive Date: 20051024
  Receipt Date: 20050827
  Transmission Date: 20060501
  Serious: No
  Sender: FDA-Public Use
  Company Number: 209292

PATIENT
  Sex: Female

DRUGS (3)
  1. XOLAIR [Suspect]
     Indication: ASTHMA
     Dosage: 375 MG, Q2W, SUBCUTANEOUS
     Route: 058
     Dates: start: 20030901
  2. PREDNISONE [Concomitant]
  3. PROTOPIC [Concomitant]

REACTIONS (1)
  - RASH PRURITIC [None]
